FAERS Safety Report 4392306-X (Version None)
Quarter: 2004Q3

REPORT INFORMATION
  Report Type: 
  Country: None (occurrence: None)
  Receive Date: 20040701
  Receipt Date: 20040624
  Transmission Date: 20050211
  Serious: Yes (Death)
  Sender: FDA-Public Use
  Company Number: US-JNJFOC-20040405977

PATIENT
  Age: 76 Year
  Sex: Female
  Weight: 53.5244 kg

DRUGS (9)
  1. REMINYL [Suspect]
     Indication: DEMENTIA
     Dosage: 8 MG, 2 IN 1 DAY, ORAL
     Route: 048
     Dates: start: 20020401
  2. ENALAPRIL MALEATE [Concomitant]
  3. HALDOL [Concomitant]
  4. ATIVAN [Concomitant]
  5. ZYPREXA [Concomitant]
  6. FOSAMAX [Concomitant]
  7. CALAN SR (VERAPAMIL HYDROCHLORIDE) [Concomitant]
  8. COUMADIN [Concomitant]
  9. LEXAPRO [Concomitant]

REACTIONS (10)
  - CARDIAC FAILURE CONGESTIVE [None]
  - CARDIO-RESPIRATORY ARREST [None]
  - CHRONIC OBSTRUCTIVE AIRWAYS DISEASE [None]
  - HYPOXIA [None]
  - INTERNATIONAL NORMALISED RATIO INCREASED [None]
  - JUGULAR VEIN DISTENSION [None]
  - MARKEDLY REDUCED DIETARY INTAKE [None]
  - METABOLIC ALKALOSIS [None]
  - PLEURAL EFFUSION [None]
  - SEDATION [None]
